FAERS Safety Report 13389139 (Version 1)
Quarter: 2017Q1

REPORT INFORMATION
  Report Type: Spontaneous
  Country: US (occurrence: US)
  Receive Date: 20170330
  Receipt Date: 20170330
  Transmission Date: 20170429
  Serious: Yes (Other)
  Sender: FDA-Public Use
  Company Number: US-ELI_LILLY_AND_COMPANY-US201703008119

PATIENT
  Age: 89 Year
  Sex: Female

DRUGS (2)
  1. HUMALOG [Suspect]
     Active Substance: INSULIN LISPRO
     Indication: TYPE 2 DIABETES MELLITUS
     Dosage: 7 U, BID
     Route: 065
     Dates: start: 2015
  2. LANTUS [Concomitant]
     Active Substance: INSULIN GLARGINE
     Dosage: 15 U, EACH EVENING

REACTIONS (4)
  - Drug dose omission [Unknown]
  - Myopia [Not Recovered/Not Resolved]
  - Transient ischaemic attack [Unknown]
  - Memory impairment [Unknown]

NARRATIVE: CASE EVENT DATE: 20170319
